FAERS Safety Report 6934434-8 (Version None)
Quarter: 2010Q3

REPORT INFORMATION
  Report Type: 
  Country: None (occurrence: None)
  Receive Date: 20100820
  Receipt Date: 20100810
  Transmission Date: 20110219
  Serious: Yes (Other)
  Sender: FDA-Public Use
  Company Number: B0670171A

PATIENT

DRUGS (1)
  1. ELTROMBOPAG [Suspect]
     Dosage: 50MG PER DAY
     Dates: start: 20100325, end: 20100506

REACTIONS (1)
  - DEEP VEIN THROMBOSIS [None]
